FAERS Safety Report 12509969 (Version 1)
Quarter: 2016Q2

REPORT INFORMATION
  Report Type: Spontaneous
  Country: DE (occurrence: DE)
  Receive Date: 20160629
  Receipt Date: 20160629
  Transmission Date: 20160815
  Serious: Yes (Other)
  Sender: FDA-Public Use
  Company Number: DE-ALLERGAN-1661369US

PATIENT
  Age: 5 Decade
  Sex: Female
  Weight: 140 kg

DRUGS (2)
  1. ESMYA [Suspect]
     Active Substance: ULIPRISTAL ACETATE
     Indication: UTERINE LEIOMYOMA
  2. ESMYA [Suspect]
     Active Substance: ULIPRISTAL ACETATE
     Indication: UTERINE HAEMORRHAGE
     Dosage: 5 MG, QD
     Route: 048

REACTIONS (7)
  - Uterine haemorrhage [Unknown]
  - Drug dose omission [Unknown]
  - Bone pain [Unknown]
  - Haemoglobin decreased [Unknown]
  - Body mass index increased [Unknown]
  - Weight increased [Unknown]
  - Oedema [Unknown]
